FAERS Safety Report 12082771 (Version 1)
Quarter: 2016Q1

REPORT INFORMATION
  Report Type: Spontaneous
  Country: US (occurrence: None)
  Receive Date: 20160216
  Receipt Date: 20160216
  Transmission Date: 20160526
  Serious: Yes (Life-Threatening, Disabling, Other)
  Sender: FDA-Public Use
  Company Number: None

PATIENT
  Age: 52 Year
  Weight: 83.92 kg

DRUGS (17)
  1. SYNTHROID [Concomitant]
     Active Substance: LEVOTHYROXINE SODIUM
  2. FLONASE [Concomitant]
     Active Substance: FLUTICASONE PROPIONATE
  3. DILAUDID [Concomitant]
     Active Substance: HYDROMORPHONE HYDROCHLORIDE
  4. D-3 [Concomitant]
     Active Substance: CHOLECALCIFEROL
  5. HYDROMORPHONE 4 MG MALLENCKROPT [Suspect]
     Active Substance: HYDROMORPHONE
     Indication: ARTHRITIS
     Dosage: 4 PILLS DAILY FOUR TIMES DAILY TAKEN BY MOUTH
     Route: 048
     Dates: start: 20160115, end: 20160212
  6. HYDROMORPHONE 4 MG MALLENCKROPT [Suspect]
     Active Substance: HYDROMORPHONE
     Indication: NERVOUS SYSTEM DISORDER
     Dosage: 4 PILLS DAILY FOUR TIMES DAILY TAKEN BY MOUTH
     Route: 048
     Dates: start: 20160115, end: 20160212
  7. ZANAFLEX [Concomitant]
     Active Substance: TIZANIDINE HYDROCHLORIDE
  8. HYDROMORPHONE 4 MG MALLENCKROPT [Suspect]
     Active Substance: HYDROMORPHONE
     Indication: IMMUNE SYSTEM DISORDER
     Dosage: 4 PILLS DAILY FOUR TIMES DAILY TAKEN BY MOUTH
     Route: 048
     Dates: start: 20160115, end: 20160212
  9. ENDOCET [Concomitant]
     Active Substance: ACETAMINOPHEN\OXYCODONE HYDROCHLORIDE
  10. LIVE PRE-AND PROBIOTICS [Concomitant]
  11. VITAMIN B12 [Concomitant]
     Active Substance: CYANOCOBALAMIN
  12. COMPRESSED SHITTAKE MUSHROOMS [Concomitant]
  13. CLONAZEPAN [Concomitant]
     Active Substance: CLONAZEPAM
  14. TORADOL [Concomitant]
     Active Substance: KETOROLAC TROMETHAMINE
  15. ACETAMINOPHEN. [Concomitant]
     Active Substance: ACETAMINOPHEN
  16. FOLIC ACID. [Concomitant]
     Active Substance: FOLIC ACID
  17. CHAMOMILE TEA [Concomitant]
     Active Substance: MATRICARIA RECUTITA

REACTIONS (13)
  - Skin ulcer [None]
  - Skin exfoliation [None]
  - Product physical issue [None]
  - Anal polyp [None]
  - Nasal polyps [None]
  - Urine odour abnormal [None]
  - Visual impairment [None]
  - Nausea [None]
  - Weight decreased [None]
  - Dry skin [None]
  - Headache [None]
  - Blister [None]
  - Flatulence [None]
